FAERS Safety Report 16313237 (Version 1)
Quarter: 2019Q2

REPORT INFORMATION
  Report Type: Report from Study
  Country: IN (occurrence: IN)
  Receive Date: 20190515
  Receipt Date: 20190515
  Transmission Date: 20190711
  Serious: Yes (Other)
  Sender: FDA-Public Use
  Company Number: PHHY2019IN107851

PATIENT
  Age: 60 Year
  Sex: Female

DRUGS (4)
  1. TASIGNA [Suspect]
     Active Substance: NILOTINIB
     Dosage: 200 MG, QD FOR 1 MONTH
     Route: 048
     Dates: start: 20190226, end: 20190325
  2. TASIGNA [Suspect]
     Active Substance: NILOTINIB
     Dosage: 200-400 MG FOR 15 DAYS, AFTER THAN 400 MG, BID
     Route: 048
     Dates: start: 20190426
  3. TASIGNA [Suspect]
     Active Substance: NILOTINIB
     Indication: CHRONIC MYELOID LEUKAEMIA
     Dosage: 400 MG, BID
     Route: 048
     Dates: start: 20190123, end: 20190131
  4. TASIGNA [Suspect]
     Active Substance: NILOTINIB
     Dosage: 200 MG, BID
     Route: 048
     Dates: start: 20190411, end: 20190425

REACTIONS (2)
  - Electrocardiogram QT prolonged [Recovered/Resolved]
  - Inappropriate schedule of product administration [Unknown]

NARRATIVE: CASE EVENT DATE: 20190201
